FAERS Safety Report 5679692-5 (Version None)
Quarter: 2008Q1

REPORT INFORMATION
  Report Type: 
  Country: None (occurrence: None)
  Receive Date: 20080324
  Receipt Date: 20080311
  Transmission Date: 20080703
  Serious: No
  Sender: FDA-Public Use
  Company Number: 002#4#2008-00111

PATIENT
  Sex: 0

DRUGS (1)
  1. NEUPRO [Suspect]
     Indication: DRUG USE FOR UNKNOWN INDICATION
     Dosage: 6MG/24H, 1 IN 1 D, TRANSDERMAL
     Route: 062

REACTIONS (1)
  - APPLICATION SITE RASH [None]
